FAERS Safety Report 10511274 (Version 1)
Quarter: 2014Q4

REPORT INFORMATION
  Report Type: Spontaneous
  Country: GB (occurrence: GB)
  Receive Date: 20141010
  Receipt Date: 20141010
  Transmission Date: 20150528
  Serious: Yes (Life-Threatening, Hospitalization)
  Sender: FDA-Public Use
  Company Number: GB-PFIZER INC-2014278482

PATIENT
  Age: 37 Year
  Sex: Female
  Weight: 60 kg

DRUGS (2)
  1. MISOPROSTOL. [Suspect]
     Active Substance: MISOPROSTOL
     Indication: ABORTION SPONTANEOUS
     Dosage: 800 UG, SINGLE
     Route: 048
     Dates: start: 20140704, end: 20140704
  2. MIFEPRISTONE [Concomitant]
     Active Substance: MIFEPRISTONE
     Dosage: UNK

REACTIONS (4)
  - Circulatory collapse [Recovered/Resolved with Sequelae]
  - Hypotension [Unknown]
  - Product use issue [Unknown]
  - Vomiting [Unknown]

NARRATIVE: CASE EVENT DATE: 20140704
